FAERS Safety Report 21602842 (Version 1)
Quarter: 2022Q4

REPORT INFORMATION
  Report Type: Spontaneous
  Country: US (occurrence: None)
  Receive Date: 20221115
  Receipt Date: 20221115
  Transmission Date: 20230113
  Serious: No
  Sender: FDA-Public Use
  Company Number: None

PATIENT

DRUGS (3)
  1. POTASSIUM CHLORIDE [Suspect]
     Active Substance: POTASSIUM CHLORIDE
     Dosage: OTHER STRENGTH : 20MEQ PER 50ML;?
  2. POTASSIUM CHLORIDE [Suspect]
     Active Substance: POTASSIUM CHLORIDE
     Dosage: OTHER STRENGTH : 10MEQ PER 100ML;?
  3. POTASSIUM CHLORIDE [Suspect]
     Active Substance: POTASSIUM CHLORIDE
     Dosage: OTHER STRENGTH : 40MEQ PER 100ML;?

REACTIONS (4)
  - Product design confusion [None]
  - Wrong product stored [None]
  - Product label confusion [None]
  - Product packaging confusion [None]
